FAERS Safety Report 21857648 (Version 2)
Quarter: 2023Q1

REPORT INFORMATION
  Report Type: Report from Study
  Country: US (occurrence: US)
  Receive Date: 20230113
  Receipt Date: 20230315
  Transmission Date: 20230417
  Serious: Yes (Other)
  Sender: FDA-Public Use
  Company Number: US-002147023-NVSC2023US005947

PATIENT
  Sex: Male

DRUGS (1)
  1. ENTRESTO [Suspect]
     Active Substance: SACUBITRIL\VALSARTAN
     Indication: Product used for unknown indication
     Dosage: 1 DOSAGE FORM, BID
     Route: 048

REACTIONS (7)
  - Diabetes mellitus [Unknown]
  - Neuropathy peripheral [Unknown]
  - Dysphonia [Unknown]
  - Disturbance in attention [Unknown]
  - Memory impairment [Unknown]
  - Dysgraphia [Unknown]
  - Hypotension [Unknown]
